FAERS Safety Report 4455665-5 (Version None)
Quarter: 2004Q3

REPORT INFORMATION
  Report Type: 
  Country: None (occurrence: None)
  Receive Date: 20040922
  Receipt Date: 20040916
  Transmission Date: 20050211
  Serious: Yes (Other)
  Sender: FDA-Public Use
  Company Number: PHNU2004DE03239

PATIENT
  Age: 19 Year
  Sex: Male

DRUGS (1)
  1. TEGRETOL-XR [Suspect]
     Dosage: 400MG/DAY
     Route: 048
     Dates: start: 20040827, end: 20040910

REACTIONS (1)
  - GLAUCOMA [None]
